FAERS Safety Report 11396959 (Version 1)
Quarter: 2015Q3

REPORT INFORMATION
  Report Type: Spontaneous
  Country: ES (occurrence: ES)
  Receive Date: 20150819
  Receipt Date: 20150819
  Transmission Date: 20151125
  Serious: Yes (Hospitalization)
  Sender: FDA-Public Use
  Company Number: PHHY2015ES096817

PATIENT
  Age: 58 Year
  Sex: Male
  Weight: 89 kg

DRUGS (10)
  1. PROPOFOL. [Concomitant]
     Active Substance: PROPOFOL
     Indication: INDUCTION OF ANAESTHESIA
     Dosage: 160 MG, UNK
     Route: 042
  2. SEVOFLURANE. [Concomitant]
     Active Substance: SEVOFLURANE
     Indication: MAINTENANCE OF ANAESTHESIA
     Route: 042
  3. MORPHINE [Concomitant]
     Active Substance: MORPHINE
     Indication: ANAESTHESIA
     Dosage: 5 MG, UNK
     Route: 065
  4. MIDAZOLAM [Concomitant]
     Active Substance: MIDAZOLAM\MIDAZOLAM HYDROCHLORIDE
     Indication: INDUCTION OF ANAESTHESIA
     Dosage: 2 MG, UNK
     Route: 042
  5. REMIFENTANIL [Concomitant]
     Active Substance: REMIFENTANIL
     Indication: MAINTENANCE OF ANAESTHESIA
     Dosage: 0.1 UG/KG PER MINUTE UNK
     Route: 042
  6. ROCURONIUM BROMIDE. [Suspect]
     Active Substance: ROCURONIUM BROMIDE
     Indication: INDUCTION OF ANAESTHESIA
     Dosage: 80 MG, UNK
     Route: 042
  7. FENTANYL. [Concomitant]
     Active Substance: FENTANYL
     Indication: INDUCTION OF ANAESTHESIA
     Dosage: 300 UG, UNK
     Route: 042
  8. BUPIVACAINE [Concomitant]
     Active Substance: BUPIVACAINE
     Indication: ANAESTHESIA
     Route: 065
  9. FENTANYL. [Concomitant]
     Active Substance: FENTANYL
     Dosage: 1 UG/ML, UNK
     Route: 065
  10. ROCURONIUM BROMIDE. [Suspect]
     Active Substance: ROCURONIUM BROMIDE
     Indication: MAINTENANCE OF ANAESTHESIA

REACTIONS (6)
  - Dyspnoea [Recovered/Resolved]
  - Ataxia [Recovered/Resolved]
  - Tachyarrhythmia [Recovered/Resolved]
  - Recurrence of neuromuscular blockade [Recovered/Resolved]
  - Apnoea [Recovered/Resolved]
  - Hypertension [Recovered/Resolved]
